FAERS Safety Report 19313355 (Version 1)
Quarter: 2021Q2

REPORT INFORMATION
  Report Type: Spontaneous
  Country: FR (occurrence: FR)
  Receive Date: 20210527
  Receipt Date: 20210527
  Transmission Date: 20210717
  Serious: Yes (Death, Other)
  Sender: FDA-Public Use
  Company Number: FR-AUROBINDO-AUR-APL-2021-021365

PATIENT
  Age: 61 Year
  Sex: Male

DRUGS (17)
  1. CISPLATIN. [Suspect]
     Active Substance: CISPLATIN
     Indication: MARGINAL ZONE LYMPHOMA
     Dosage: UNK
     Route: 065
  2. CYCLOPHOSPHAMIDE. [Suspect]
     Active Substance: CYCLOPHOSPHAMIDE
     Indication: MARGINAL ZONE LYMPHOMA
     Dosage: UNK
     Route: 065
  3. CARMUSTINE. [Suspect]
     Active Substance: CARMUSTINE
     Indication: BONE MARROW CONDITIONING REGIMEN
  4. RITUXIMAB. [Suspect]
     Active Substance: RITUXIMAB
     Indication: MARGINAL ZONE LYMPHOMA
     Dosage: UNK
     Route: 065
  5. ETOPOSIDE. [Suspect]
     Active Substance: ETOPOSIDE
     Indication: MARGINAL ZONE LYMPHOMA
  6. MELPHALAN. [Suspect]
     Active Substance: MELPHALAN
     Indication: BONE MARROW CONDITIONING REGIMEN
     Dosage: UNK
     Route: 065
  7. CARMUSTINE. [Suspect]
     Active Substance: CARMUSTINE
     Indication: MARGINAL ZONE LYMPHOMA
     Dosage: UNK
     Route: 065
  8. DEXAMETHASONE. [Suspect]
     Active Substance: DEXAMETHASONE
     Indication: MARGINAL ZONE LYMPHOMA
     Dosage: UNK
     Route: 065
  9. CYTARABINE. [Suspect]
     Active Substance: CYTARABINE
     Indication: MARGINAL ZONE LYMPHOMA
     Dosage: UNK
     Route: 065
  10. ETOPOSIDE. [Suspect]
     Active Substance: ETOPOSIDE
     Indication: DIFFUSE LARGE B-CELL LYMPHOMA
     Dosage: UNK
     Route: 065
  11. VINCRISTINE [Suspect]
     Active Substance: VINCRISTINE
     Indication: MARGINAL ZONE LYMPHOMA
     Dosage: UNK
     Route: 065
  12. MITOXANTRONE [Suspect]
     Active Substance: MITOXANTRONE HYDROCHLORIDE
     Indication: DIFFUSE LARGE B-CELL LYMPHOMA
     Dosage: UNK
     Route: 065
  13. PREDNISOLONE. [Suspect]
     Active Substance: PREDNISOLONE
     Indication: LYMPHOMA
     Dosage: UNK
     Route: 065
  14. DOXORUBICIN [Suspect]
     Active Substance: DOXORUBICIN
     Indication: MARGINAL ZONE LYMPHOMA
     Dosage: UNK
     Route: 065
  15. ETOPOSIDE. [Suspect]
     Active Substance: ETOPOSIDE
     Indication: BONE MARROW CONDITIONING REGIMEN
  16. MELPHALAN. [Suspect]
     Active Substance: MELPHALAN
     Indication: MARGINAL ZONE LYMPHOMA
  17. IFOSFAMIDE. [Suspect]
     Active Substance: IFOSFAMIDE
     Indication: DIFFUSE LARGE B-CELL LYMPHOMA
     Dosage: UNK
     Route: 065

REACTIONS (10)
  - Acute myeloid leukaemia [Fatal]
  - Sepsis [Fatal]
  - Nodal marginal zone B-cell lymphoma recurrent [Fatal]
  - Product use in unapproved indication [Fatal]
  - Therapeutic product effect incomplete [Fatal]
  - Kaposi^s sarcoma [Fatal]
  - Therapeutic response decreased [Fatal]
  - Cellulitis [Fatal]
  - B-cell lymphoma [Fatal]
  - Skin mass [Fatal]
